FAERS Safety Report 5692777-2 (Version None)
Quarter: 2008Q2

REPORT INFORMATION
  Report Type: 
  Country: None (occurrence: None)
  Receive Date: 20080401
  Receipt Date: 20080324
  Transmission Date: 20081010
  Serious: Yes (Life-Threatening, Hospitalization)
  Sender: FDA-Public Use
  Company Number: 163-C5013-08020717(1)

PATIENT
  Age: 79 Year
  Sex: Female
  Weight: 81.1031 kg

DRUGS (10)
  1. CC-5013 (LENALIDOMIDE) (CAPSULES) [Suspect]
     Indication: DIFFUSE LARGE B-CELL LYMPHOMA
     Dosage: 25 MG, DAILY X 21 DAYS, ORAL; 20 MG, DAILY X 21 DAYS, ORAL; 15 MG, DAILY X 21 DAYS, ORAL
     Route: 048
     Dates: start: 20080219, end: 20080305
  2. CC-5013 (LENALIDOMIDE) (CAPSULES) [Suspect]
     Indication: DIFFUSE LARGE B-CELL LYMPHOMA
     Dosage: 25 MG, DAILY X 21 DAYS, ORAL; 20 MG, DAILY X 21 DAYS, ORAL; 15 MG, DAILY X 21 DAYS, ORAL
     Route: 048
     Dates: start: 20080122
  3. CC-5013 (LENALIDOMIDE) (CAPSULES) [Suspect]
     Indication: DIFFUSE LARGE B-CELL LYMPHOMA
     Dosage: 25 MG, DAILY X 21 DAYS, ORAL; 20 MG, DAILY X 21 DAYS, ORAL; 15 MG, DAILY X 21 DAYS, ORAL
     Route: 048
     Dates: start: 20080319
  4. AEROBID (FLUNISOLIDE) (INHALANT) [Concomitant]
  5. CALCIUM CARBONATE (CALCIUM CARBONATE) [Concomitant]
  6. DIOVAN [Concomitant]
  7. VITAMIN D [Concomitant]
  8. SINGULAIR [Concomitant]
  9. ASPIRIN [Concomitant]
  10. CARTIA XT [Concomitant]

REACTIONS (4)
  - ASTHMA [None]
  - CHRONIC OBSTRUCTIVE PULMONARY DISEASE [None]
  - CONDITION AGGRAVATED [None]
  - NEUTROPENIA [None]
